FAERS Safety Report 6439474-3 (Version None)
Quarter: 2009Q4

REPORT INFORMATION
  Report Type: 
  Country: None (occurrence: None)
  Receive Date: 20091113
  Receipt Date: 20091105
  Transmission Date: 20100525
  Serious: Yes (Death, Life-Threatening)
  Sender: FDA-Public Use
  Company Number: FR-EISAI INC.-E3810-03292-SPO-FR

PATIENT
  Sex: Female

DRUGS (11)
  1. PARIET (RABEPRAZOLE) [Suspect]
     Route: 048
  2. APROVEL [Suspect]
  3. GLUCOPHAGE [Suspect]
  4. FEROGRAD VITAMIN C [Concomitant]
  5. IRON [Concomitant]
  6. ASCORBIC ACID [Concomitant]
  7. DIGOXIN [Concomitant]
     Indication: ATRIAL FIBRILLATION
  8. INSULIN DETEMIR [Concomitant]
  9. INSULIN GLULISINE [Concomitant]
  10. SMECTITE [Concomitant]
  11. TRIMEBUTINE MALEATE [Concomitant]
     Indication: GASTROINTESTINAL PAIN

REACTIONS (1)
  - LACTIC ACIDOSIS [None]
